FAERS Safety Report 4338470-X (Version None)
Quarter: 2004Q2

REPORT INFORMATION
  Report Type: 
  Country: None (occurrence: None)
  Receive Date: 20040409
  Receipt Date: 20020322
  Transmission Date: 20050107
  Serious: No
  Sender: FDA-Public Use
  Company Number: N135773

PATIENT
  Age: 76 Year
  Sex: Female

DRUGS (3)
  1. PLAVIX [Suspect]
     Dosage: ORAL
     Route: 048
     Dates: start: 20010401
  2. IRON PREPARATIONS - (IRON PREPARATIONS) - FORM: [Suspect]
     Dosage: ORAL
     Route: 048
  3. VARIOUS MEDICATIONS (NOS) [Concomitant]

REACTIONS (1)
  - HEPATITIS [None]
